FAERS Safety Report 5638888-9 (Version None)
Quarter: 2008Q1

REPORT INFORMATION
  Report Type: 
  Country: None (occurrence: None)
  Receive Date: 20080225
  Receipt Date: 20080225
  Transmission Date: 20080703
  Serious: Yes (Other)
  Sender: FDA-Public Use
  Company Number: None

PATIENT
  Age: 51 Year
  Sex: Female
  Weight: 58.9676 kg

DRUGS (8)
  1. TOPAMAX [Suspect]
     Indication: MIGRAINE
     Dates: start: 20050910, end: 20051124
  2. PLAQUENIL [Concomitant]
  3. MEDROL [Concomitant]
  4. WELLBUTRIN [Concomitant]
  5. LIPITOR [Concomitant]
  6. NEXIUM [Concomitant]
  7. NADOLOL [Concomitant]
  8. NORTRIPTYLINE HCL [Concomitant]

REACTIONS (4)
  - COGNITIVE DISORDER [None]
  - CRYING [None]
  - DEPRESSION [None]
  - SUICIDAL BEHAVIOUR [None]
